FAERS Safety Report 8363453-2 (Version None)
Quarter: 2012Q2

REPORT INFORMATION
  Report Type: 
  Country: None (occurrence: None)
  Receive Date: 20120516
  Receipt Date: 20120507
  Transmission Date: 20120825
  Serious: Yes (Hospitalization, Other)
  Sender: FDA-Public Use
  Company Number: JP-JNJFOC-20120211669

PATIENT
  Sex: Male
  Weight: 61 kg

DRUGS (13)
  1. OXAROL [Concomitant]
     Indication: PSORIASIS
     Route: 061
  2. ANTEBATE [Concomitant]
     Dates: end: 20120307
  3. STELARA [Suspect]
     Route: 058
     Dates: start: 20111213
  4. CYCLOSPORINE [Suspect]
     Indication: PSORIASIS
     Dates: start: 20080908, end: 20110729
  5. STELARA [Suspect]
     Route: 058
     Dates: start: 20120220
  6. CLOBETASOL PROPIONATE [Concomitant]
     Indication: PSORIASIS
     Route: 061
  7. HEPARIN [Concomitant]
     Indication: PSORIASIS
     Route: 061
     Dates: start: 20110920, end: 20120307
  8. ALMETA [Concomitant]
     Indication: PSORIASIS
     Route: 061
  9. PYDOXAL [Concomitant]
     Route: 048
     Dates: end: 20120307
  10. FAMOTIDINE [Concomitant]
     Route: 048
  11. STELARA [Suspect]
     Route: 058
     Dates: start: 20110920
  12. STELARA [Suspect]
     Indication: PSORIASIS
     Route: 058
     Dates: start: 20110823
  13. ISONIAZID [Concomitant]
     Route: 048
     Dates: end: 20120307

REACTIONS (1)
  - TONSIL CANCER [None]
